FAERS Safety Report 9708890 (Version 6)
Quarter: 2015Q4

REPORT INFORMATION
  Report Type: Report from Study
  Country: JP (occurrence: JP)
  Receive Date: 20131125
  Receipt Date: 20151222
  Transmission Date: 20160305
  Serious: Yes (Hospitalization, Other)
  Sender: FDA-Public Use
  Company Number: JP-TEVA-446285USA

PATIENT
  Age: 58 Year
  Sex: Male

DRUGS (33)
  1. TRICHLORMETHIAZIDE [Concomitant]
     Active Substance: TRICHLORMETHIAZIDE
     Indication: HYPERTENSION
     Dates: start: 20131004
  2. HYDROCORTISONE BUTYRATE. [Concomitant]
     Active Substance: HYDROCORTISONE BUTYRATE
     Indication: RASH MACULO-PAPULAR
     Dates: start: 20131007
  3. LOXOPROFEN SODIUM [Concomitant]
     Active Substance: LOXOPROFEN SODIUM
     Dates: start: 20131113, end: 20131114
  4. GLYCYRRHIZIC ACID, AMMONIUM SALT [Concomitant]
     Indication: RASH MACULO-PAPULAR
     Dates: start: 20131013
  5. ASPIRIN. [Concomitant]
     Active Substance: ASPIRIN
     Indication: CEREBRAL INFARCTION
  6. ALLOPURINOL. [Concomitant]
     Active Substance: ALLOPURINOL
     Dates: start: 20131004, end: 20131013
  7. DIPHENHYDRAMINE HYDROCHLORIDE. [Concomitant]
     Active Substance: DIPHENHYDRAMINE HYDROCHLORIDE
     Indication: PROPHYLAXIS
     Dates: start: 20131001
  8. DOMPERIDONE [Concomitant]
     Active Substance: DOMPERIDONE
     Indication: NAUSEA
     Dates: start: 20131004, end: 20131005
  9. LACTIC ACID. [Concomitant]
     Active Substance: LACTIC ACID
     Indication: PRODUCT USED FOR UNKNOWN INDICATION
  10. RITUXIMAB [Suspect]
     Active Substance: RITUXIMAB
     Indication: B-CELL LYMPHOMA
     Dosage: MG/ML IN VOLUME OF 625 ML EVERY 4 WEEKS
     Route: 042
     Dates: start: 20131001
  11. GRANISETRON HYDROCHLORIDE. [Concomitant]
     Active Substance: GRANISETRON HYDROCHLORIDE
     Indication: PROPHYLAXIS
     Dates: start: 20131002, end: 20131003
  12. GLUCOSE [Concomitant]
     Active Substance: DEXTROSE
     Indication: PRODUCT USED FOR UNKNOWN INDICATION
  13. ALLOPURINOL. [Concomitant]
     Active Substance: ALLOPURINOL
     Indication: HYPERURICAEMIA
     Dates: start: 20131003
  14. DIFLUPREDNATE [Concomitant]
     Active Substance: DIFLUPREDNATE
     Indication: RASH MACULO-PAPULAR
     Dates: start: 20131012
  15. SOLDEM 1 [Concomitant]
     Active Substance: DEXTROSE\SODIUM CHLORIDE\SODIUM LACTATE
     Dates: start: 20131112, end: 20131121
  16. CLONIDINE. [Concomitant]
     Active Substance: CLONIDINE
     Indication: HYPERTENSION
  17. APREPITANT. [Concomitant]
     Active Substance: APREPITANT
     Dates: start: 20131003, end: 20131004
  18. LOXOPROFEN SODIUM [Concomitant]
     Active Substance: LOXOPROFEN SODIUM
     Indication: FEBRILE NEUTROPENIA
     Dates: start: 20131010, end: 20131012
  19. PREDNISOLONE. [Concomitant]
     Active Substance: PREDNISOLONE
     Indication: RASH MACULO-PAPULAR
     Dates: start: 20131012, end: 20131015
  20. BENDAMUSTINE [Suspect]
     Active Substance: BENDAMUSTINE
     Indication: B-CELL LYMPHOMA
     Route: 042
     Dates: start: 20131002
  21. GLYCYRRHIZIC ACID, AMMONIUM SALT [Concomitant]
     Dates: start: 20131015, end: 20131106
  22. INDAPAMIDE. [Concomitant]
     Active Substance: INDAPAMIDE
     Indication: HYPERTENSION
     Dates: start: 20131003
  23. RABEPRAZOLE SODIUM. [Concomitant]
     Active Substance: RABEPRAZOLE SODIUM
     Indication: PROPHYLAXIS
     Dates: start: 20131001
  24. ATORVASTATIN CALCIUM. [Concomitant]
     Active Substance: ATORVASTATIN CALCIUM
     Indication: HYPERLIPIDAEMIA
  25. BAKTAR [Concomitant]
     Active Substance: SULFAMETHOXAZOLE\TRIMETHOPRIM
     Indication: PROPHYLAXIS
     Dates: start: 20131001, end: 20131013
  26. METOCLOPRAMIDE HYDROCHLORIDE. [Concomitant]
     Active Substance: METOCLOPRAMIDE HYDROCHLORIDE
     Indication: NAUSEA
     Dates: start: 20131005, end: 20131006
  27. CEFEPIME HYDROCHLORIDE. [Concomitant]
     Active Substance: CEFEPIME HYDROCHLORIDE
     Indication: FEBRILE NEUTROPENIA
     Dates: start: 20131010, end: 20131015
  28. SODIUM NOS [Concomitant]
     Indication: PRODUCT USED FOR UNKNOWN INDICATION
  29. ACYCLOVIR. [Concomitant]
     Active Substance: ACYCLOVIR
     Indication: PROPHYLAXIS
     Dates: start: 20131001, end: 20131013
  30. APREPITANT. [Concomitant]
     Active Substance: APREPITANT
     Indication: PROPHYLAXIS
     Dates: start: 20131002, end: 20151002
  31. ACETAMINOPHEN. [Concomitant]
     Active Substance: ACETAMINOPHEN
     Indication: PROPHYLAXIS
     Dates: start: 20131001
  32. POTASSIUM NOS [Concomitant]
     Indication: PRODUCT USED FOR UNKNOWN INDICATION
  33. SOLDEM 1 [Concomitant]
     Active Substance: DEXTROSE\SODIUM CHLORIDE\SODIUM LACTATE
     Dates: start: 20131005, end: 20131006

REACTIONS (1)
  - Hepatic function abnormal [Recovered/Resolved]

NARRATIVE: CASE EVENT DATE: 20131015
